FAERS Safety Report 24840771 (Version 1)
Quarter: 2025Q1

REPORT INFORMATION
  Report Type: Spontaneous
  Country: US (occurrence: US)
  Receive Date: 20250114
  Receipt Date: 20250114
  Transmission Date: 20250409
  Serious: Yes (Death, Other)
  Sender: NOVARTIS
  Company Number: US-002147023-NVSC2025US005433

PATIENT
  Age: 34 Year
  Sex: Male

DRUGS (2)
  1. MEKINIST [Suspect]
     Active Substance: TRAMETINIB DIMETHYL SULFOXIDE
     Indication: Brain neoplasm malignant
     Dosage: 2 MG, QD
     Route: 048
     Dates: start: 202404
  2. GLEOSTINE [Concomitant]
     Active Substance: LOMUSTINE
     Indication: Product used for unknown indication
     Route: 065

REACTIONS (1)
  - Brain cancer metastatic [Fatal]

NARRATIVE: CASE EVENT DATE: 20250101
